FAERS Safety Report 7178028-0 (Version None)
Quarter: 2010Q4

REPORT INFORMATION
  Report Type: 
  Country: None (occurrence: None)
  Receive Date: 20101208
  Receipt Date: 20101124
  Transmission Date: 20110411
  Serious: Yes (Hospitalization)
  Sender: FDA-Public Use
  Company Number: 014681

PATIENT
  Sex: Female

DRUGS (21)
  1. CERTOLIZUMAB PEGOL (CERTOLIZUMAB PEGOL) [Suspect]
     Indication: RHEUMATOID ARTHRITIS
     Dosage: (STUDY: CDP870-41 SUBCUTANEOUS), (200 MG 1X/2 WEEKS SUBCUTANEOUS), (SUBCUTANEOUS)
     Route: 058
     Dates: start: 20090708, end: 20100107
  2. CERTOLIZUMAB PEGOL (CERTOLIZUMAB PEGOL) [Suspect]
     Indication: RHEUMATOID ARTHRITIS
     Dosage: (STUDY: CDP870-41 SUBCUTANEOUS), (200 MG 1X/2 WEEKS SUBCUTANEOUS), (SUBCUTANEOUS)
     Route: 058
     Dates: start: 20090708, end: 20100107
  3. CERTOLIZUMAB PEGOL (CERTOLIZUMAB PEGOL) [Suspect]
     Indication: RHEUMATOID ARTHRITIS
     Dosage: (STUDY: CDP870-41 SUBCUTANEOUS), (200 MG 1X/2 WEEKS SUBCUTANEOUS), (SUBCUTANEOUS)
     Route: 058
     Dates: start: 20100121, end: 20100609
  4. CERTOLIZUMAB PEGOL (CERTOLIZUMAB PEGOL) [Suspect]
     Indication: RHEUMATOID ARTHRITIS
     Dosage: (STUDY: CDP870-41 SUBCUTANEOUS), (200 MG 1X/2 WEEKS SUBCUTANEOUS), (SUBCUTANEOUS)
     Route: 058
     Dates: start: 20100804
  5. CERTOLIZUMAB PEGOL (CERTOLIZUMAB PEGOL) [Suspect]
     Indication: RHEUMATOID ARTHRITIS
     Dosage: (STUDY: CDP870-41 SUBCUTANEOUS), (200 MG 1X/2 WEEKS SUBCUTANEOUS), (SUBCUTANEOUS)
     Route: 058
     Dates: start: 20101119
  6. METHOTREXATE [Suspect]
     Indication: RHEUMATOID ARTHRITIS
     Dosage: (7.5 MG ORAL)
     Route: 048
     Dates: start: 20090509, end: 20100619
  7. METHOTREXATE [Suspect]
     Indication: RHEUMATOID ARTHRITIS
     Dosage: (7.5 MG ORAL)
     Route: 048
     Dates: start: 20100724
  8. FOLIC ACID [Concomitant]
  9. PREDNISOLONE [Concomitant]
  10. CELECOXIB [Concomitant]
  11. DICLOFENAC SODIUM [Concomitant]
  12. TEPRENONE [Concomitant]
  13. LANSOPRAZOLE [Concomitant]
  14. FERROUS FUMARATE [Concomitant]
  15. ALUMINIUM HYDROXIDE-MAGNESIUM CARBONATE GEL [Concomitant]
  16. DIFLUCORTOLONE VALERATE [Concomitant]
  17. LEVOFLOXACIN [Concomitant]
  18. REBAMIPIDE [Concomitant]
  19. OTSUJITOU [Concomitant]
  20. LOXOPROFEN SODIUM [Concomitant]
  21. UNKNOWN [Concomitant]

REACTIONS (14)
  - ACROCHORDON [None]
  - BACK PAIN [None]
  - BACTERIAL TEST POSITIVE [None]
  - CONDITION AGGRAVATED [None]
  - HAEMATOCHEZIA [None]
  - HAEMORRHOIDS [None]
  - HEADACHE [None]
  - MALAISE [None]
  - NEPHROLITHIASIS [None]
  - PAINFUL DEFAECATION [None]
  - PROTEIN URINE PRESENT [None]
  - PYELONEPHRITIS [None]
  - RENAL ABSCESS [None]
  - RENAL HYPERTROPHY [None]
